FAERS Safety Report 19086903 (Version 1)
Quarter: 2021Q2

REPORT INFORMATION
  Report Type: Spontaneous
  Country: US (occurrence: US)
  Receive Date: 20210401
  Receipt Date: 20210401
  Transmission Date: 20210717
  Serious: Yes (Hospitalization)
  Sender: FDA-Public Use
  Company Number: None

PATIENT
  Age: 76 Year
  Sex: Male
  Weight: 79 kg

DRUGS (1)
  1. FLUDROCORTISONE (FLUDROCORTISONE ACETATE 0.1MG TAB) [Suspect]
     Active Substance: FLUDROCORTISONE ACETATE
     Indication: RESPIRATORY FAILURE
     Route: 048
     Dates: start: 20210108, end: 20210311

REACTIONS (2)
  - Cardiac failure congestive [None]
  - Toxicity to various agents [None]

NARRATIVE: CASE EVENT DATE: 20210305
